FAERS Safety Report 8045555-3 (Version None)
Quarter: 2012Q1

REPORT INFORMATION
  Report Type: 
  Country: None (occurrence: None)
  Receive Date: 20120112
  Receipt Date: 20120112
  Transmission Date: 20120608
  Serious: Yes (Other)
  Sender: FDA-Public Use
  Company Number: None

PATIENT
  Sex: Female
  Weight: 64.4108 kg

DRUGS (3)
  1. ENOXAPARIN [Suspect]
     Indication: SURGERY
     Dosage: 4 U/L 2 INJ. PER DAY 4 DAYS SUPPLY
     Dates: start: 20111125
  2. ENOXAPARIN [Suspect]
     Indication: SURGERY
     Dosage: 4 U/L 2 INJ. PER DAY 4 DAYS SUPPLY
     Dates: start: 20111126
  3. ENOXAPARIN [Suspect]
     Indication: SURGERY
     Dosage: 4 U/L 2 INJ. PER DAY 4 DAYS SUPPLY
     Dates: start: 20111127

REACTIONS (5)
  - PAIN [None]
  - SKIN DISCOLOURATION [None]
  - SWELLING [None]
  - PRODUCT SUBSTITUTION ISSUE [None]
  - BURNING SENSATION [None]
